FAERS Safety Report 7378417-5 (Version None)
Quarter: 2011Q1

REPORT INFORMATION
  Report Type: 
  Country: None (occurrence: None)
  Receive Date: 20110323
  Receipt Date: 20110323
  Transmission Date: 20110831
  Serious: Yes (Other)
  Sender: FDA-Public Use
  Company Number: None

PATIENT
  Age: 40 Year
  Sex: Female

DRUGS (4)
  1. BALSALAZIDE 750 WATSON [Suspect]
     Indication: COLITIS ULCERATIVE
     Dates: start: 20100101
  2. BALSALAZIDE 750 HYLAN [Suspect]
     Indication: COLITIS ULCERATIVE
     Dates: start: 20100101
  3. BAISALAZIDE BALSALAZIDE [Suspect]
     Indication: COLITIS ULCERATIVE
     Dates: start: 20100120
  4. BALSALAZIDE 750 APOTEX [Suspect]
     Indication: COLITIS ULCERATIVE
     Dates: start: 20100101

REACTIONS (2)
  - NAUSEA [None]
  - HEADACHE [None]
